FAERS Safety Report 22399750 (Version 1)
Quarter: 2023Q2

REPORT INFORMATION
  Report Type: Spontaneous
  Country: None (occurrence: FR)
  Receive Date: 20230602
  Receipt Date: 20230602
  Transmission Date: 20230722
  Serious: Yes (Death, Other)
  Sender: FDA-Public Use
  Company Number: FR-B.Braun Medical Inc.-2142287

PATIENT
  Age: 86 Year
  Sex: Female
  Weight: 83 kg

DRUGS (13)
  1. ACETAMINOPHEN [Suspect]
     Active Substance: ACETAMINOPHEN
  2. RAMIPRIL [Suspect]
     Active Substance: RAMIPRIL
  3. POTASSIUM CHLORIDE [Suspect]
     Active Substance: POTASSIUM CHLORIDE
  4. MOVICOL [Suspect]
     Active Substance: POLYETHYLENE GLYCOL 3350\POTASSIUM CHLORIDE\SODIUM BICARBONATE\SODIUM CHLORIDE
  5. SKENAN [Suspect]
     Active Substance: MORPHINE SULFATE
  6. ATORVASTATIN [Suspect]
     Active Substance: ATORVASTATIN
  7. FUROSEMIDE [Suspect]
     Active Substance: FUROSEMIDE
  8. GLICLAZIDE [Suspect]
     Active Substance: GLICLAZIDE
  9. COMIRNATY [Suspect]
     Active Substance: TOZINAMERAN
  10. ATENOLOL [Suspect]
     Active Substance: ATENOLOL
  11. FLUINDIONE [Suspect]
     Active Substance: FLUINDIONE
  12. MIANSERIN HYDROCHLORIDE [Suspect]
     Active Substance: MIANSERIN HYDROCHLORIDE
  13. ACARBOSE [Suspect]
     Active Substance: ACARBOSE

REACTIONS (1)
  - Cardiogenic shock [Fatal]
